FAERS Safety Report 8878543 (Version 1)
Quarter: 2012Q4

REPORT INFORMATION
  Report Type: 
  Country: US (occurrence: US)
  Receive Date: 20121025
  Receipt Date: 20121025
  Transmission Date: 20130627
  Serious: No
  Sender: FDA-Public Use
  Company Number: US-AMGEN-USASP2012023117

PATIENT
  Age: 38 Year
  Sex: Male
  Weight: 156.46 kg

DRUGS (6)
  1. ENBREL [Suspect]
     Indication: PRODUCT USED FOR UNKNOWN INDICATION
     Dosage: 50 mg, qwk
     Route: 058
  2. CITALOPRAM [Concomitant]
     Dosage: 10 mg, UNK
  3. NORCO [Concomitant]
     Dosage: UNK
  4. MORPHINE SULPHATE [Concomitant]
     Dosage: 50 mg, UNK
  5. NORTRIPTYLIN [Concomitant]
     Dosage: 50 mg, qwk
  6. RANITIDINE [Concomitant]
     Dosage: 150 mg, UNK

REACTIONS (1)
  - Diarrhoea [Unknown]
